FAERS Safety Report 7819497 (Version 6)
Quarter: 2013Q3

REPORT INFORMATION
  Report Type: Spontaneous
  Country: US (occurrence: US)
  Receive Date: 20110218
  Receipt Date: 20130827
  Transmission Date: 20140515
  Serious: Yes (Other)
  Sender: FDA-Public Use
  Company Number: US-US-EMD SERONO, INC.-7042046

PATIENT
  Age: 53 Year
  Sex: Female
  Weight: 52 kg

DRUGS (9)
  1. REBIF [Suspect]
     Indication: MULTIPLE SCLEROSIS
     Route: 058
     Dates: start: 20061103
  2. REBIF [Suspect]
     Route: 058
     Dates: start: 20100822
  3. REBIF [Suspect]
     Route: 058
  4. TYLENOL [Concomitant]
     Indication: PREMEDICATION
  5. ARMOUR THYROID [Concomitant]
     Indication: HYPOTHYROIDISM
  6. SYNTHROID [Concomitant]
     Indication: HYPOTHYROIDISM
  7. PHENOBARBITOL [Concomitant]
     Indication: CONVULSION
     Dates: start: 1977
  8. METOPROLOL [Concomitant]
     Indication: HEART RATE INCREASED
  9. ADVIL [Concomitant]
     Indication: PREMEDICATION

REACTIONS (2)
  - Haemochromatosis [Not Recovered/Not Resolved]
  - Porphyria non-acute [Recovered/Resolved]
